FAERS Safety Report 21164386 (Version 1)
Quarter: 2022Q3

REPORT INFORMATION
  Report Type: Report from Study
  Country: US (occurrence: US)
  Receive Date: 20220803
  Receipt Date: 20220803
  Transmission Date: 20221027
  Serious: Yes (Other)
  Sender: FDA-Public Use
  Company Number: US-ABBVIE-22K-163-4490853-00

PATIENT
  Age: 82 Year
  Sex: Male

DRUGS (2)
  1. VENCLEXTA [Suspect]
     Active Substance: VENETOCLAX
     Indication: Acute myeloid leukaemia
     Dosage: PATIENT TOOK VENCLEXTA FOR 14 DAYS ON AND 14 DAYS OFF
     Route: 048
     Dates: start: 20220729, end: 2022
  2. PANTOPRAZOLE SODIUM [Concomitant]
     Active Substance: PANTOPRAZOLE SODIUM
     Indication: Product used for unknown indication

REACTIONS (2)
  - Oesophageal carcinoma [Not Recovered/Not Resolved]
  - Oropharyngeal spasm [Not Recovered/Not Resolved]

NARRATIVE: CASE EVENT DATE: 20220729
